FAERS Safety Report 5398449-6 (Version None)
Quarter: 2007Q3

REPORT INFORMATION
  Report Type: 
  Country: None (occurrence: None)
  Receive Date: 20070724
  Receipt Date: 20070712
  Transmission Date: 20080115
  Serious: Yes (Hospitalization)
  Sender: FDA-Public Use
  Company Number: 2007SP000963

PATIENT
  Age: 89 Year
  Sex: Female

DRUGS (5)
  1. DIPROLENE [Suspect]
     Dates: start: 20061102, end: 20061127
  2. BETAMETHASONE [Suspect]
     Dosage: PO
     Route: 048
     Dates: start: 20061102, end: 20061127
  3. PERINDOPRIL ERBUMINE [Suspect]
     Dosage: 4 MG; QD; 2 MG; QD
     Dates: start: 20061025
  4. LEVOTHYROXINE SODIUM [Suspect]
     Dosage: 0.5 DF; QD; PO
     Route: 048
  5. LASIX [Suspect]
     Dosage: 1 DF QD; PO
     Route: 048

REACTIONS (1)
  - PEMPHIGOID [None]
